FAERS Safety Report 8688445 (Version 2)
Quarter: 2012Q4

REPORT INFORMATION
  Report Type: 
  Country: CA (occurrence: CA)
  Receive Date: 20120727
  Receipt Date: 20120928
  Transmission Date: 20130627
  Serious: Yes (Other)
  Sender: FDA-Public Use
  Company Number: CA-ELI_LILLY_AND_COMPANY-CA201207006509

PATIENT
  Age: 87 Year
  Sex: Female

DRUGS (10)
  1. FORTEO [Suspect]
     Indication: OSTEOPOROSIS
     Dosage: 20 ug, qd
     Route: 058
     Dates: start: 20120302
  2. LIPITOR [Concomitant]
  3. FISH OIL [Concomitant]
  4. VITAMIN D NOS [Concomitant]
  5. VITAMIN E [Concomitant]
  6. GLUCOSAMIN                         /00943605/ [Concomitant]
  7. BOICIL [Concomitant]
  8. VITAMIN B12 [Concomitant]
  9. OMEGA 3-6-9 [Concomitant]
  10. IRBESARTAN HCT [Concomitant]

REACTIONS (2)
  - Anxiety [Recovered/Resolved]
  - Feeling abnormal [Recovered/Resolved]
